FAERS Safety Report 22899310 (Version 2)
Quarter: 2024Q2

REPORT INFORMATION
  Report Type: Spontaneous
  Country: CN (occurrence: CN)
  Receive Date: 20230904
  Receipt Date: 20240614
  Transmission Date: 20240717
  Serious: Yes (Other)
  Sender: FDA-Public Use
  Company Number: CN-ABBVIE-5390595

PATIENT

DRUGS (1)
  1. RIBAVIRIN [Suspect]
     Active Substance: RIBAVIRIN
     Indication: Severe fever with thrombocytopenia syndrome
     Route: 065

REACTIONS (2)
  - Mechanical ventilation [Unknown]
  - Off label use [Unknown]
